FAERS Safety Report 6423571-2 (Version None)
Quarter: 2009Q4

REPORT INFORMATION
  Report Type: 
  Country: None (occurrence: None)
  Receive Date: 20091028
  Receipt Date: 20091015
  Transmission Date: 20100525
  Serious: Yes (Other)
  Sender: FDA-Public Use
  Company Number: DE-1169668

PATIENT
  Sex: Female

DRUGS (1)
  1. FLUORESCITE [Suspect]
     Dosage: 5 ML OVER 8-15 SECONDS INTRAVENOUS BOLUS
     Route: 040

REACTIONS (5)
  - BLOOD PRESSURE INCREASED [None]
  - CIRCULATORY COLLAPSE [None]
  - DIZZINESS [None]
  - FEELING HOT [None]
  - VERTIGO [None]
